FAERS Safety Report 11416985 (Version 1)
Quarter: 2015Q3

REPORT INFORMATION
  Report Type: Spontaneous
  Country: CL (occurrence: CL)
  Receive Date: 20150825
  Receipt Date: 20150825
  Transmission Date: 20151125
  Serious: Yes (Hospitalization, Other)
  Sender: FDA-Public Use
  Company Number: PHHY2015CL090026

PATIENT
  Age: 55 Year
  Sex: Male

DRUGS (2)
  1. EXFORGE [Suspect]
     Active Substance: AMLODIPINE BESYLATE\VALSARTAN
     Indication: HYPERTENSION
     Dosage: 1 DF, QD
     Route: 065
     Dates: start: 20150707
  2. CAPTOPRIL. [Concomitant]
     Active Substance: CAPTOPRIL
     Indication: HYPERTENSION
     Route: 060

REACTIONS (7)
  - Hypertension [Not Recovered/Not Resolved]
  - Gait disturbance [Unknown]
  - Cerebral infarction [Unknown]
  - Muscular weakness [Unknown]
  - Dizziness [Unknown]
  - Grip strength decreased [Unknown]
  - Headache [Not Recovered/Not Resolved]
